FAERS Safety Report 24217124 (Version 1)
Quarter: 2024Q3

REPORT INFORMATION
  Report Type: Spontaneous
  Country: US (occurrence: None)
  Receive Date: 20240815
  Receipt Date: 20240815
  Transmission Date: 20241017
  Serious: Yes (Life-Threatening, Hospitalization)
  Sender: Public
  Company Number: None

PATIENT
  Age: 59 Year
  Sex: Male

DRUGS (1)
  1. CETUXIMAB [Suspect]
     Active Substance: CETUXIMAB
     Indication: Tonsil cancer
     Dosage: OTHER FREQUENCY : ONCE;?
     Route: 051
     Dates: start: 20240814, end: 20240814

REACTIONS (3)
  - Infusion related reaction [None]
  - Mental status changes [None]
  - Pulse absent [None]

NARRATIVE: CASE EVENT DATE: 20240814
